FAERS Safety Report 5961381-0 (Version None)
Quarter: 2008Q4

REPORT INFORMATION
  Report Type: 
  Country: None (occurrence: None)
  Receive Date: 20081121
  Receipt Date: 20081107
  Transmission Date: 20090506
  Serious: Yes (Death, Life-Threatening, Other)
  Sender: FDA-Public Use
  Company Number: US-ELI_LILLY_AND_COMPANY-US200811001824

PATIENT
  Sex: Male

DRUGS (1)
  1. XIGRIS [Suspect]

REACTIONS (3)
  - DEATH [None]
  - HAEMORRHAGE INTRACRANIAL [None]
  - MALAISE [None]
